FAERS Safety Report 7442828-X (Version None)
Quarter: 2011Q2

REPORT INFORMATION
  Report Type: 
  Country: None (occurrence: None)
  Receive Date: 20110420
  Receipt Date: 20110405
  Transmission Date: 20111010
  Serious: Yes (Other)
  Sender: FDA-Public Use
  Company Number: AUR-APU-2011-01227

PATIENT
  Age: 13 Year
  Sex: Female

DRUGS (3)
  1. UNSPECIFIED PRN MEDICATIONS [Concomitant]
  2. CITALOPRAM HYDROBROMIDE [Suspect]
     Dosage: 20MG, DAILY,
     Dates: start: 20110324, end: 20110325
  3. TRAZODONE HCL [Concomitant]

REACTIONS (2)
  - DYSTONIA [None]
  - MOVEMENT DISORDER [None]
